FAERS Safety Report 14654270 (Version 1)
Quarter: 2018Q1

REPORT INFORMATION
  Report Type: Spontaneous
  Country: IT (occurrence: IT)
  Receive Date: 20180319
  Receipt Date: 20180319
  Transmission Date: 20180509
  Serious: Yes (Hospitalization)
  Sender: FDA-Public Use
  Company Number: PHHY2017IT201222

PATIENT
  Age: 57 Year
  Sex: Male

DRUGS (9)
  1. GLUCANTIME [Suspect]
     Active Substance: MEGLUMINE ANTIMONIATE
     Indication: LEISHMANIASIS
     Dosage: UNK
     Route: 065
  2. GLUCANTIME [Suspect]
     Active Substance: MEGLUMINE ANTIMONIATE
     Dosage: 20 MG/KG/DIE FOR 2 CYCLES OF 15 DAYS EACH
     Route: 030
  3. AMPHOTERICIN B LIPID COMPLEX [Suspect]
     Active Substance: AMPHOTERICIN B
     Indication: LEISHMANIASIS
     Dosage: 3 MG/KG, UNK (DAY 38)
     Route: 042
  4. AMPHOTERICIN B LIPID COMPLEX [Suspect]
     Active Substance: AMPHOTERICIN B
     Dosage: 3 MG/KG, UNK (DAY 17)
     Route: 042
  5. AMPHOTERICIN B LIPID COMPLEX [Suspect]
     Active Substance: AMPHOTERICIN B
     Dosage: 3 MG/KG, UNK (DAY 24)
     Route: 042
  6. AMPHOTERICIN B LIPID COMPLEX [Suspect]
     Active Substance: AMPHOTERICIN B
     Dosage: 3 MG/KG, UNK
     Route: 042
  7. AMPHOTERICIN B LIPID COMPLEX [Suspect]
     Active Substance: AMPHOTERICIN B
     Dosage: 3 MG/KG, UNK (DAY 31)
     Route: 042
  8. PREDNISONE. [Suspect]
     Active Substance: PREDNISONE
     Indication: IMMUNOSUPPRESSANT DRUG THERAPY
     Dosage: UNK
     Route: 065
  9. AZATHIOPRINE. [Suspect]
     Active Substance: AZATHIOPRINE
     Indication: IMMUNOSUPPRESSANT DRUG THERAPY
     Dosage: UNK
     Route: 065

REACTIONS (14)
  - Splenomegaly [Recovering/Resolving]
  - Abdominal pain [Recovered/Resolved]
  - Disease progression [Recovering/Resolving]
  - Leishmaniasis [Recovering/Resolving]
  - Leukopenia [Recovered/Resolved]
  - Drug ineffective [Unknown]
  - Headache [Recovered/Resolved]
  - Mastication disorder [Recovering/Resolving]
  - Visceral leishmaniasis [Recovered/Resolved]
  - Hypergammaglobulinaemia [Recovering/Resolving]
  - Mucocutaneous leishmaniasis [Recovering/Resolving]
  - Pyrexia [Recovered/Resolved]
  - Palatal swelling [Recovered/Resolved]
  - Myalgia [Recovered/Resolved]

NARRATIVE: CASE EVENT DATE: 1994
